FAERS Safety Report 9448223 (Version 1)
Quarter: 2013Q3

REPORT INFORMATION
  Report Type: Spontaneous
  Country: US (occurrence: US)
  Receive Date: 20130808
  Receipt Date: 20130808
  Transmission Date: 20140515
  Serious: Yes (Other)
  Sender: FDA-Public Use
  Company Number: US-BAYER-2013-093575

PATIENT
  Sex: Male

DRUGS (1)
  1. STIVARGA [Suspect]

REACTIONS (1)
  - Palmar-plantar erythrodysaesthesia syndrome [None]
